FAERS Safety Report 7594193-5 (Version None)
Quarter: 2011Q3

REPORT INFORMATION
  Report Type: 
  Country: None (occurrence: None)
  Receive Date: 20110706
  Receipt Date: 20110621
  Transmission Date: 20111222
  Serious: Yes (Hospitalization)
  Sender: FDA-Public Use
  Company Number: US-BAYER-2011-054382

PATIENT
  Age: 82 Year
  Sex: Male

DRUGS (2)
  1. SAXAGLIPTIN OR PLACEBO [Suspect]
     Indication: TYPE 2 DIABETES MELLITUS
     Dosage: UNK
     Dates: start: 20101217
  2. ASPIRIN [Suspect]
     Dosage: 100 MG, UNK
     Dates: start: 20101217, end: 20110601

REACTIONS (3)
  - ARTERIOSCLEROSIS [None]
  - UPPER GASTROINTESTINAL HAEMORRHAGE [None]
  - CAROTID ARTERY DISEASE [None]
